FAERS Safety Report 13121378 (Version 3)
Quarter: 2017Q3

REPORT INFORMATION
  Report Type: Report from Study
  Country: BR (occurrence: BR)
  Receive Date: 20170117
  Receipt Date: 20170831
  Transmission Date: 20171127
  Serious: Yes (Other)
  Sender: FDA-Public Use
  Company Number: BR-JNJFOC-20170111566

PATIENT
  Age: 60 Year
  Sex: Female
  Weight: 72 kg

DRUGS (16)
  1. ATENSINE [Concomitant]
     Active Substance: DIAZEPAM
     Route: 065
  2. ADDERA D3 [Concomitant]
     Active Substance: CHOLECALCIFEROL
     Route: 065
  3. TROPINAL [Concomitant]
     Route: 065
  4. VITAMIN D [Concomitant]
     Active Substance: CHOLECALCIFEROL
     Route: 065
  5. PURAN [Concomitant]
     Active Substance: LEVOTHYROXINE SODIUM
     Indication: THYROID DISORDER
     Route: 065
  6. COMBIRON [Concomitant]
     Active Substance: ASCORBIC ACID\FERROUS SULFATE\FOLIC ACID\PYRIDOXINE HYDROCHLORIDE\RIBOFLAVIN\THIAMINE MONONITRATE
     Route: 065
  7. CALCIUM [Concomitant]
     Active Substance: CALCIUM
     Route: 065
  8. ADENOSYLMETHIONINE [Concomitant]
     Route: 065
  9. NEO FOLICO [Concomitant]
     Route: 065
  10. SIMPONI [Suspect]
     Active Substance: GOLIMUMAB
     Indication: RHEUMATOID ARTHRITIS
     Route: 058
  11. RESFENOL [Concomitant]
     Route: 065
  12. SIMPONI [Suspect]
     Active Substance: GOLIMUMAB
     Indication: RHEUMATOID ARTHRITIS
     Route: 058
     Dates: start: 20160919
  13. RISEDRONATE SODIUM. [Concomitant]
     Active Substance: RISEDRONATE SODIUM
     Route: 065
  14. NEUTROFER [Concomitant]
     Active Substance: FERROUS BISGLYCINATE
     Route: 065
  15. MULTIGRIP [Concomitant]
     Route: 065
  16. LOSARTAN. [Concomitant]
     Active Substance: LOSARTAN
     Indication: HYPERTENSION
     Route: 065

REACTIONS (8)
  - Nasopharyngitis [Unknown]
  - Urticaria [Unknown]
  - Mass [Unknown]
  - Arthropod bite [Recovered/Resolved]
  - Rash pustular [Unknown]
  - Pyrexia [Recovered/Resolved]
  - Rheumatoid arthritis [Not Recovered/Not Resolved]
  - Urinary tract infection [Unknown]

NARRATIVE: CASE EVENT DATE: 201708
